FAERS Safety Report 10302146 (Version 2)
Quarter: 2014Q4

REPORT INFORMATION
  Report Type: Spontaneous
  Country: CA (occurrence: None)
  Receive Date: 20140709
  Receipt Date: 20141112
  Transmission Date: 20150528
  Serious: Yes (Hospitalization)
  Sender: FDA-Public Use
  Company Number: VAL_03206_2014

PATIENT
  Age: 26 Year
  Sex: Female

DRUGS (3)
  1. DIGOXIN (DIGOXIN) [Suspect]
     Active Substance: DIGOXIN
     Indication: ATRIAL FLUTTER
     Dosage: 0.25 MG, DAILY, (DF)
  2. METOPROLOL [Suspect]
     Active Substance: METOPROLOL
     Indication: ATRIAL FLUTTER
     Dosage: 25 MG BID, (DF)
  3. ENOXAPARIN (ENOXAPARIN) [Suspect]
     Active Substance: ENOXAPARIN
     Indication: ATRIAL FLUTTER

REACTIONS (3)
  - Exposure during pregnancy [None]
  - Caesarean section [None]
  - Atrial flutter [None]
